FAERS Safety Report 5339455-7 (Version None)
Quarter: 2007Q2

REPORT INFORMATION
  Report Type: 
  Country: None (occurrence: None)
  Receive Date: 20070525
  Receipt Date: 20070515
  Transmission Date: 20071010
  Serious: Yes (Death)
  Sender: FDA-Public Use
  Company Number: 070516-0000518

PATIENT
  Sex: 0

DRUGS (1)
  1. INDOMETHACIN [Suspect]
     Indication: HEART DISEASE CONGENITAL
     Dosage: IV
     Route: 042

REACTIONS (3)
  - COARCTATION OF THE AORTA [None]
  - MULTI-ORGAN FAILURE [None]
  - PREMATURE BABY [None]
